FAERS Safety Report 16669840 (Version 3)
Quarter: 2019Q4

REPORT INFORMATION
  Report Type: Spontaneous
  Country: US (occurrence: US)
  Receive Date: 20190805
  Receipt Date: 20191112
  Transmission Date: 20200122
  Serious: Yes (Other)
  Sender: FDA-Public Use
  Company Number: US-PFIZER INC-2019333383

PATIENT
  Age: 51 Year
  Sex: Male
  Weight: 117 kg

DRUGS (14)
  1. LISINOPRIL. [Concomitant]
     Active Substance: LISINOPRIL
     Dosage: UNK, 1X/DAY (5 OR 10MG, DOSE UNCERTAIN; ONCE A DAY)
  2. LYRICA [Suspect]
     Active Substance: PREGABALIN
     Indication: NEUROPATHY PERIPHERAL
     Dosage: UNK
     Dates: end: 2015
  3. ASPIRIN [ACETYLSALICYLIC ACID] [Concomitant]
     Active Substance: ASPIRIN
     Dosage: 325 MG, 1X/DAY
  4. MAGNESIUM [Concomitant]
     Active Substance: MAGNESIUM
     Dosage: UNK, 1X/DAY
  5. CARVEDILOL. [Concomitant]
     Active Substance: CARVEDILOL
     Dosage: 3.125 MG, 2X/DAY
  6. LYRICA [Suspect]
     Active Substance: PREGABALIN
     Indication: DIABETIC NEUROPATHY
     Dosage: 150 MG, 1X/DAY
     Route: 048
  7. GABAPENTIN. [Concomitant]
     Active Substance: GABAPENTIN
     Dosage: 600 MG, 3X/DAY
  8. FIASP [Concomitant]
     Active Substance: INSULIN ASPART
     Dosage: 20 IU, 2X/DAY
  9. RANITIDINE. [Concomitant]
     Active Substance: RANITIDINE
     Dosage: 300 MG, 1X/DAY (TWO TABLETS IN THE EVENING )
  10. VITAMIN B12 [Concomitant]
     Active Substance: CYANOCOBALAMIN
     Dosage: 5000 MG, 2X/DAY (DOSE UNCERTAIN, TWICE A DAY)
  11. LYRICA [Suspect]
     Active Substance: PREGABALIN
     Indication: TYPE 2 DIABETES MELLITUS
     Dosage: 150 MG, 3X/DAY
     Route: 048
     Dates: start: 2017
  12. ATORVASTAN [Concomitant]
     Active Substance: ATORVASTATIN CALCIUM
     Dosage: 40 MG, 2X/DAY
  13. POTASSIUM [Concomitant]
     Active Substance: POTASSIUM
     Dosage: UNK, ALTERNATE DAY (EVERY OTHER DAY)
  14. TRESIBA [Concomitant]
     Active Substance: INSULIN DEGLUDEC
     Dosage: 56 IU, 1X/DAY

REACTIONS (2)
  - Neuropathy peripheral [Unknown]
  - Cardiac disorder [Unknown]
